FAERS Safety Report 9015740 (Version 1)
Quarter: 2013Q1

REPORT INFORMATION
  Report Type: Spontaneous
  Country: US (occurrence: US)
  Receive Date: 20130116
  Receipt Date: 20130116
  Transmission Date: 20140127
  Serious: Yes (Death, Hospitalization, Other)
  Sender: FDA-Public Use
  Company Number: US-UCBSA-074787

PATIENT
  Age: 47 Year
  Sex: Female

DRUGS (5)
  1. HYDROXYZINE PAMOATE [Suspect]
     Route: 048
  2. ALPRAZOLAM [Suspect]
     Route: 048
  3. AMLODIPINE BESILATE [Suspect]
     Route: 048
  4. FUROSEMIDE [Suspect]
     Route: 048
  5. SIMVASTATIN [Suspect]
     Route: 048

REACTIONS (1)
  - Completed suicide [Fatal]
